FAERS Safety Report 16160822 (Version 3)
Quarter: 2019Q2

REPORT INFORMATION
  Report Type: Spontaneous
  Country: US (occurrence: US)
  Receive Date: 20190405
  Receipt Date: 20190414
  Transmission Date: 20190711
  Serious: Yes (Hospitalization, Disabling)
  Sender: FDA-Public Use
  Company Number: US-ROCHE-2295237

PATIENT
  Age: 64 Year
  Sex: Female
  Weight: 88.08 kg

DRUGS (15)
  1. LEXAPRO [Concomitant]
     Active Substance: ESCITALOPRAM OXALATE
     Indication: DEPRESSION
     Route: 048
     Dates: start: 20160101
  2. TRILEPTAL [Concomitant]
     Active Substance: OXCARBAZEPINE
     Indication: NEURALGIA
     Route: 048
     Dates: start: 20120101
  3. SEROQUEL [Concomitant]
     Active Substance: QUETIAPINE FUMARATE
     Route: 048
     Dates: start: 20140101
  4. LAMICTAL [Concomitant]
     Active Substance: LAMOTRIGINE
     Indication: NEUROPATHY PERIPHERAL
     Route: 048
     Dates: start: 20140101
  5. LOSARTAN. [Concomitant]
     Active Substance: LOSARTAN
     Indication: HYPERTENSION
     Route: 048
     Dates: start: 20100101
  6. NPH INSULIN [Concomitant]
     Active Substance: INSULIN BEEF
     Indication: TYPE 1 DIABETES MELLITUS
     Dosage: 60 UNITS: ONGOING: YES
     Route: 058
     Dates: start: 20080101
  7. ATORVASTATIN [Concomitant]
     Active Substance: ATORVASTATIN
     Indication: HYPERCHOLESTEROLAEMIA
     Route: 048
     Dates: start: 20100101
  8. TOPAMAX [Concomitant]
     Active Substance: TOPIRAMATE
     Route: 048
     Dates: start: 20120101
  9. ACETAMINOPHEN. [Concomitant]
     Active Substance: ACETAMINOPHEN
     Route: 048
  10. BENADRYL [Concomitant]
     Active Substance: DIPHENHYDRAMINE HYDROCHLORIDE
     Route: 042
  11. SOLU-MEDROL [Concomitant]
     Active Substance: METHYLPREDNISOLONE SODIUM SUCCINATE
     Route: 042
  12. VERAPAMIL [Concomitant]
     Active Substance: VERAPAMIL HYDROCHLORIDE
     Indication: HYPERTENSION
     Route: 048
     Dates: start: 20100101
  13. OCREVUS [Suspect]
     Active Substance: OCRELIZUMAB
     Indication: RELAPSING-REMITTING MULTIPLE SCLEROSIS
     Dosage: FIRST HALF DOSE
     Route: 042
     Dates: start: 20190225
  14. GABAPENTIN. [Concomitant]
     Active Substance: GABAPENTIN
     Indication: NEUROPATHY PERIPHERAL
     Route: 048
     Dates: start: 20120101
  15. HUMULIN R [Concomitant]
     Active Substance: INSULIN HUMAN
     Indication: TYPE 1 DIABETES MELLITUS
     Dosage: 60 UNITS: ONGOING: YES
     Route: 058
     Dates: start: 20080101

REACTIONS (3)
  - Aphasia [Recovered/Resolved]
  - Immobile [Recovered/Resolved]
  - Acute kidney injury [Recovering/Resolving]

NARRATIVE: CASE EVENT DATE: 20190311
